FAERS Safety Report 8594513-9 (Version None)
Quarter: 2012Q3

REPORT INFORMATION
  Report Type: 
  Country: None (occurrence: None)
  Receive Date: 20120801
  Receipt Date: 20120718
  Transmission Date: 20120928
  Serious: Yes (Hospitalization, Other)
  Sender: FDA-Public Use
  Company Number: ENTC2012-0331

PATIENT
  Age: 94 Year
  Sex: Male

DRUGS (6)
  1. LEVOTHYROXINE SODIUM [Concomitant]
  2. BETAHISTINE CHLORIDE [Concomitant]
  3. PREVISCAN [Concomitant]
  4. POTASSIUM CHLORIDE [Concomitant]
  5. CALCITRIOL [Suspect]
     Dosage: 1 DF DAILY ORAL
     Route: 048
     Dates: end: 20120516
  6. STALEVO 50 [Suspect]
     Indication: PARKINSON'S DISEASE
     Dosage: 2 DOSAGE FORMS (1 DOSAGE FORM,2 IN 1 D) ORAL
     Route: 048
     Dates: end: 20120516

REACTIONS (8)
  - CONFUSIONAL STATE [None]
  - GENERAL PHYSICAL HEALTH DETERIORATION [None]
  - CREATININE RENAL CLEARANCE DECREASED [None]
  - DECREASED APPETITE [None]
  - DEHYDRATION [None]
  - CALCIUM PHOSPHATE PRODUCT INCREASED [None]
  - DIARRHOEA [None]
  - BLOOD 1,25-DIHYDROXYCHOLECALCIFEROL INCREASED [None]
